FAERS Safety Report 4696306-1 (Version None)
Quarter: 2005Q2

REPORT INFORMATION
  Report Type: 
  Country: None (occurrence: None)
  Receive Date: 20050620
  Receipt Date: 20050607
  Transmission Date: 20051028
  Serious: Yes (Other)
  Sender: FDA-Public Use
  Company Number: 2005086031

PATIENT
  Sex: Male
  Weight: 71.6683 kg

DRUGS (3)
  1. VIAGRA [Suspect]
     Indication: ERECTILE DYSFUNCTION
     Dosage: 50 MG
     Dates: start: 19990101
  2. VIOXX [Concomitant]
  3. IBUPROFEN [Concomitant]

REACTIONS (3)
  - DRUG EFFECT DECREASED [None]
  - LYMPHOMA [None]
  - SPLENOMEGALY [None]
